FAERS Safety Report 6265151-8 (Version None)
Quarter: 2009Q3

REPORT INFORMATION
  Report Type: 
  Country: None (occurrence: None)
  Receive Date: 20090708
  Receipt Date: 20090629
  Transmission Date: 20100115
  Serious: No
  Sender: FDA-Public Use
  Company Number: D0062119A

PATIENT
  Age: 61 Year
  Sex: Male
  Weight: 67.8581 kg

DRUGS (1)
  1. WELLBUTRIN XL [Suspect]
     Indication: DEPRESSION
     Dosage: 150 MG/PER DAY/ORAL
     Route: 048
     Dates: start: 20090528

REACTIONS (1)
  - PODAGRA [None]
